FAERS Safety Report 4596255-3 (Version None)
Quarter: 2005Q1

REPORT INFORMATION
  Report Type: 
  Country: None (occurrence: None)
  Receive Date: 20050302
  Receipt Date: 20050221
  Transmission Date: 20050727
  Serious: Yes (Hospitalization)
  Sender: FDA-Public Use
  Company Number: US-JNJFOC-20041200293

PATIENT
  Sex: Male
  Weight: 58.97 kg

DRUGS (1)
  1. DURAGESIC-100 [Suspect]
     Indication: DRUG USE FOR UNKNOWN INDICATION
     Route: 062

REACTIONS (16)
  - ABDOMINAL PAIN LOWER [None]
  - ANXIETY [None]
  - ASTHENIA [None]
  - COLD SWEAT [None]
  - CONSTIPATION [None]
  - DRUG TOXICITY [None]
  - HYPOAESTHESIA [None]
  - MUSCLE SPASMS [None]
  - MUSCULOSKELETAL STIFFNESS [None]
  - NAUSEA [None]
  - NERVOUSNESS [None]
  - PAIN IN EXTREMITY [None]
  - PARAESTHESIA [None]
  - SINUSITIS [None]
  - TREMOR [None]
  - URINARY HESITATION [None]
